FAERS Safety Report 5207869-1 (Version None)
Quarter: 2007Q1

REPORT INFORMATION
  Report Type: 
  Country: None (occurrence: None)
  Receive Date: 20070112
  Receipt Date: 20070102
  Transmission Date: 20070707
  Serious: Yes (Other)
  Sender: FDA-Public Use
  Company Number: US-PFIZER INC-2007002286

PATIENT
  Sex: Female

DRUGS (5)
  1. NEURONTIN [Suspect]
  2. PROZAC [Concomitant]
  3. FLONASE [Concomitant]
  4. CLARITIN [Concomitant]
  5. AMITRIPTYLINE HCL [Concomitant]

REACTIONS (7)
  - AMNESIA [None]
  - ANXIETY [None]
  - DEPRESSION [None]
  - FEMALE SEXUAL DYSFUNCTION [None]
  - IRRITABILITY [None]
  - LOSS OF LIBIDO [None]
  - SUICIDAL IDEATION [None]
